FAERS Safety Report 15460165 (Version 2)
Quarter: 2018Q4

REPORT INFORMATION
  Report Type: Report from Study
  Country: US (occurrence: US)
  Receive Date: 20181003
  Receipt Date: 20181005
  Transmission Date: 20190204
  Serious: Yes (Other)
  Sender: FDA-Public Use
  Company Number: US-GILEAD-2018-0365787

PATIENT
  Age: 15 Year
  Sex: Male

DRUGS (1)
  1. AZTREONAM LYSINE [Suspect]
     Active Substance: AZTREONAM LYSINE
     Indication: CONGENITAL ANOMALY
     Dosage: 75 MG, TID FOR 28 DAYS
     Route: 065

REACTIONS (2)
  - Respiratory tract malformation [Not Recovered/Not Resolved]
  - Off label use [Not Recovered/Not Resolved]
